FAERS Safety Report 9805217 (Version 3)
Quarter: 2014Q1

REPORT INFORMATION
  Report Type: Report from Study
  Country: DE (occurrence: DE)
  Receive Date: 20140109
  Receipt Date: 20140207
  Transmission Date: 20141002
  Serious: Yes (Death, Life-Threatening, Hospitalization, Other)
  Sender: FDA-Public Use
  Company Number: DE-ROCHE-1330731

PATIENT
  Age: 58 Year
  Sex: Male
  Weight: 87 kg

DRUGS (10)
  1. METHOXY POLYETHYLENE GLYCOL-EPOETIN BETA [Suspect]
     Indication: NEPHROGENIC ANAEMIA
     Route: 042
     Dates: start: 20120201, end: 20121105
  2. VALSARTAN [Concomitant]
     Indication: HYPERTENSION
     Route: 048
  3. BISOPROLOL [Concomitant]
     Route: 048
  4. ACETYLSALICYLIC ACID [Concomitant]
     Route: 048
  5. TORASEMID [Concomitant]
     Indication: RENAL FAILURE CHRONIC
     Route: 048
  6. FERRLECIT (GERMANY) [Concomitant]
     Indication: MINERAL SUPPLEMENTATION
     Route: 042
     Dates: start: 20120130
  7. CARBAMAZEPINA [Concomitant]
     Route: 065
  8. ALLOPURINOL [Concomitant]
     Route: 065
  9. CALCITRIOL [Concomitant]
     Route: 065
  10. CALCIUM ACETATE [Concomitant]
     Route: 065

REACTIONS (4)
  - Cardiac arrest [Fatal]
  - Otitis externa [Recovered/Resolved]
  - Bronchopneumonia [Recovered/Resolved]
  - Overdose [Unknown]
